FAERS Safety Report 5759164-X (Version None)
Quarter: 2008Q2

REPORT INFORMATION
  Report Type: 
  Country: None (occurrence: None)
  Receive Date: 20080604
  Receipt Date: 20080330
  Transmission Date: 20081010
  Serious: Yes (Hospitalization, Other)
  Sender: FDA-Public Use
  Company Number: US-PFIZER INC-2008002559

PATIENT
  Age: 79 Year
  Sex: Female

DRUGS (17)
  1. CHANTIX [Suspect]
     Indication: SMOKING CESSATION THERAPY
     Route: 048
  2. ALL OTHER NON-THERAPEUTIC PRODUCTS [Suspect]
  3. LIBRIUM [Concomitant]
     Indication: ANXIETY
  4. LIBRIUM [Concomitant]
     Indication: PANIC ATTACK
  5. ENALAPRIL MALEATE [Concomitant]
  6. IMIPRAMINE [Concomitant]
     Indication: DEPRESSION
  7. ANTICOAGULANTS [Concomitant]
  8. ALL OTHER THERAPEUTIC PRODUCTS [Concomitant]
  9. ANTIHYPERTENSIVES [Concomitant]
  10. CEPHALEXIN [Concomitant]
  11. DIURETICS [Concomitant]
  12. PLAVIX [Concomitant]
  13. ASPIRIN [Concomitant]
  14. NITROGLYCERIN [Concomitant]
  15. ALL OTHER THERAPEUTIC PRODUCTS [Concomitant]
  16. AMITRIPTYLINE HCL [Concomitant]
  17. COLESTIPOL HYDROCHLORIDE [Concomitant]

REACTIONS (21)
  - ANXIETY [None]
  - BLISTER [None]
  - BLUE TOE SYNDROME [None]
  - CELLULITIS [None]
  - CEREBROVASCULAR ACCIDENT [None]
  - CONVULSION [None]
  - DEPRESSION [None]
  - DYSARTHRIA [None]
  - ELECTROLYTE IMBALANCE [None]
  - EMPHYSEMA [None]
  - GAIT DISTURBANCE [None]
  - HALLUCINATION [None]
  - LIMB INJURY [None]
  - LOCALISED INFECTION [None]
  - PANIC ATTACK [None]
  - POOR PERIPHERAL CIRCULATION [None]
  - PULSE ABSENT [None]
  - SURGERY [None]
  - THINKING ABNORMAL [None]
  - VENOUS STASIS [None]
  - VISUAL ACUITY REDUCED [None]
